FAERS Safety Report 12498487 (Version 4)
Quarter: 2016Q3

REPORT INFORMATION
  Report Type: Spontaneous
  Country: US (occurrence: US)
  Receive Date: 20160627
  Receipt Date: 20160813
  Transmission Date: 20161109
  Serious: Yes (Other)
  Sender: FDA-Public Use
  Company Number: US-AUROBINDO-AUR-APL-2016-08034

PATIENT
  Sex: Male

DRUGS (1)
  1. LEVETIRACETAM ORAL SOLUTION 100 MG/ML [Suspect]
     Active Substance: LEVETIRACETAM
     Indication: SEIZURE
     Dosage: 5 ML, BID
     Route: 048
     Dates: start: 2013

REACTIONS (2)
  - Drug ineffective [Unknown]
  - Seizure [Unknown]
